FAERS Safety Report 5867390-4 (Version None)
Quarter: 2008Q3

REPORT INFORMATION
  Report Type: 
  Country: None (occurrence: None)
  Receive Date: 20080902
  Receipt Date: 20080826
  Transmission Date: 20090109
  Serious: Yes (Other)
  Sender: FDA-Public Use
  Company Number: PHHY2008DE19806

PATIENT
  Sex: Male

DRUGS (2)
  1. RASILEZ [Suspect]
  2. DRUG THERAPY NOS [Suspect]

REACTIONS (1)
  - RENAL FAILURE [None]
